FAERS Safety Report 9649103 (Version 3)
Quarter: 2013Q4

REPORT INFORMATION
  Report Type: Spontaneous
  Country: JP (occurrence: JP)
  Receive Date: 20131028
  Receipt Date: 20131227
  Transmission Date: 20140711
  Serious: Yes (Other)
  Sender: FDA-Public Use
  Company Number: JP-PFIZER INC-2013304150

PATIENT
  Age: 38 Year
  Sex: Female
  Weight: 78.5 kg

DRUGS (4)
  1. HYSRON-H [Suspect]
     Indication: UTERINE CANCER
     Dosage: 200 MG, 3X/DAY
     Route: 048
     Dates: start: 20130117
  2. BAYASPIRIN [Concomitant]
     Indication: THROMBOSIS PROPHYLAXIS
     Dosage: 100 MG, 1X/DAY
     Route: 048
     Dates: start: 20130117, end: 20131016
  3. REZALTAS [Concomitant]
     Indication: HYPERTENSION
     Dosage: 1 DF, 1X/DAY
     Route: 048
     Dates: start: 2012
  4. MERCAZOLE [Concomitant]
     Indication: BASEDOW^S DISEASE
     Dosage: 20 MG, 2X/DAY
     Route: 048
     Dates: start: 20130521, end: 20130611

REACTIONS (1)
  - Basedow^s disease [Not Recovered/Not Resolved]
